FAERS Safety Report 5025252-9 (Version None)
Quarter: 2006Q2

REPORT INFORMATION
  Report Type: 
  Country: None (occurrence: None)
  Receive Date: 20060608
  Receipt Date: 20060608
  Transmission Date: 20061013
  Serious: Yes (Life-Threatening, Hospitalization, Disabling, Other)
  Sender: FDA-Public Use
  Company Number: None

PATIENT
  Age: 2 Year
  Sex: Female
  Weight: 11.7935 kg

DRUGS (1)
  1. NORVASC [Suspect]
     Indication: RAYNAUD'S PHENOMENON
     Dosage: 1 TABLET   DAILY   PO
     Route: 048
     Dates: start: 19980301

REACTIONS (8)
  - CARDIAC SEPTAL DEFECT [None]
  - CONVULSION NEONATAL [None]
  - DEVELOPMENTAL DELAY [None]
  - DRUG EXPOSURE BEFORE PREGNANCY [None]
  - DRUG EXPOSURE DURING PREGNANCY [None]
  - GASTROINTESTINAL TUBE INSERTION [None]
  - PREGNANCY [None]
  - PREMATURE BABY [None]
